FAERS Safety Report 6851336-6 (Version None)
Quarter: 2010Q3

REPORT INFORMATION
  Report Type: 
  Country: None (occurrence: None)
  Receive Date: 20100717
  Receipt Date: 20080117
  Transmission Date: 20110219
  Serious: Yes (Other)
  Sender: FDA-Public Use
  Company Number: US-PFIZER INC-2008006468

PATIENT
  Sex: Female
  Weight: 83.5 kg

DRUGS (2)
  1. CHANTIX [Suspect]
     Indication: SMOKING CESSATION THERAPY
     Dates: start: 20071101
  2. ALL OTHER THERAPEUTIC PRODUCTS [Concomitant]
     Indication: IRRITABLE BOWEL SYNDROME

REACTIONS (2)
  - ABNORMAL DREAMS [None]
  - ARRHYTHMIA [None]
